APPROVED DRUG PRODUCT: VASCOR
Active Ingredient: BEPRIDIL HYDROCHLORIDE
Strength: 200MG
Dosage Form/Route: TABLET;ORAL
Application: N019002 | Product #001
Applicant: JOHNSON AND JOHNSON PHARMACEUTICAL RESEARCH AND DEVELOPMENT LLC
Approved: Dec 28, 1990 | RLD: No | RS: No | Type: DISCN